FAERS Safety Report 25924759 (Version 1)
Quarter: 2025Q4

REPORT INFORMATION
  Report Type: Spontaneous
  Country: US (occurrence: US)
  Receive Date: 20251015
  Receipt Date: 20251015
  Transmission Date: 20260117
  Serious: No
  Sender: GLAXOSMITHKLINE
  Company Number: US-GSK-US2025131264

PATIENT
  Age: 78 Year
  Sex: Female

DRUGS (1)
  1. BENLYSTA [Suspect]
     Active Substance: BELIMUMAB
     Indication: Product used for unknown indication
     Dosage: UNK

REACTIONS (6)
  - Injection site bruising [Unknown]
  - Feeling abnormal [Unknown]
  - Decreased appetite [Unknown]
  - Insomnia [Unknown]
  - Chills [Unknown]
  - Feeling hot [Unknown]

NARRATIVE: CASE EVENT DATE: 20251009
